FAERS Safety Report 8138342-9 (Version None)
Quarter: 2012Q1

REPORT INFORMATION
  Report Type: 
  Country: None (occurrence: None)
  Receive Date: 20120215
  Receipt Date: 20120209
  Transmission Date: 20120608
  Serious: No
  Sender: FDA-Public Use
  Company Number: US-PFIZER INC-2012036363

PATIENT
  Sex: Female
  Weight: 59 kg

DRUGS (3)
  1. ALBUTEROL [Concomitant]
     Indication: ASTHMA
     Dosage: UNK
  2. LO/OVRAL [Suspect]
     Indication: ENDOMETRIOSIS
  3. LO/OVRAL [Suspect]
     Indication: OFF LABEL USE
     Dosage: UNK
     Route: 048
     Dates: end: 20120206

REACTIONS (7)
  - ABDOMINAL DISTENSION [None]
  - NAUSEA [None]
  - HEADACHE [None]
  - PAIN [None]
  - METRORRHAGIA [None]
  - WEIGHT INCREASED [None]
  - MUSCLE SPASMS [None]
